FAERS Safety Report 23568192 (Version 1)
Quarter: 2024Q1

REPORT INFORMATION
  Report Type: Other
  Country: TW (occurrence: TW)
  Receive Date: 20240226
  Receipt Date: 20240226
  Transmission Date: 20240410
  Serious: No
  Sender: FDA-Public Use
  Company Number: TW-WW-2024-GSK-015864

PATIENT
  Age: 100 Year
  Sex: Male

DRUGS (3)
  1. DUTASTERIDE [Suspect]
     Active Substance: DUTASTERIDE
     Indication: Benign prostatic hyperplasia
     Route: 065
  2. TAMSULOSIN [Suspect]
     Active Substance: TAMSULOSIN
     Route: 065
  3. BETHANECHOL [Suspect]
     Active Substance: BETHANECHOL
     Route: 065

REACTIONS (1)
  - Treatment failure [Unknown]
